FAERS Safety Report 6709937-1 (Version None)
Quarter: 2010Q2

REPORT INFORMATION
  Report Type: 
  Country: None (occurrence: None)
  Receive Date: 20100504
  Receipt Date: 20100128
  Transmission Date: 20101027
  Serious: Yes (Other)
  Sender: FDA-Public Use
  Company Number: FR-SANOFI-AVENTIS-2010SA005648

PATIENT
  Age: 83 Year
  Sex: Female

DRUGS (2)
  1. LASIX [Suspect]
     Indication: DRUG USE FOR UNKNOWN INDICATION
     Route: 065
     Dates: start: 20050101, end: 20090101
  2. LASIX [Suspect]
     Route: 065
     Dates: start: 20090101

REACTIONS (2)
  - HALLUCINATION, AUDITORY [None]
  - TINNITUS [None]
